FAERS Safety Report 7237241-4 (Version None)
Quarter: 2011Q1

REPORT INFORMATION
  Report Type: 
  Country: None (occurrence: None)
  Receive Date: 20110121
  Receipt Date: 20110113
  Transmission Date: 20110831
  Serious: Yes (Other)
  Sender: FDA-Public Use
  Company Number: KR-ASTELLAS-2011JP000402

PATIENT
  Sex: Male

DRUGS (7)
  1. ALPROSTADIL [Concomitant]
     Dosage: 28 UG, UNKNOWN/D
     Route: 042
     Dates: start: 20090819, end: 20090916
  2. VANCOMYCIN [Concomitant]
     Dosage: 1200 MG, UNKNOWN/D
     Route: 042
     Dates: start: 20090823, end: 20091003
  3. ACYCLOVIR [Concomitant]
     Dosage: 420 MG, UNKNOWN/D
     Route: 042
     Dates: start: 20090810
  4. CYCLOSPORINE [Concomitant]
     Dosage: 94 MG, UNKNOWN/D
     Route: 042
     Dates: start: 20090817
  5. MICAFUNGIN INJECTION [Suspect]
     Indication: INFECTION PROPHYLAXIS
     Dosage: 27 MG, UNKNOWN/D
     Route: 042
     Dates: start: 20090810, end: 20090917
  6. MEROPENEM [Concomitant]
     Dosage: 1800 MG, UNKNOWN/D
     Route: 042
     Dates: start: 20090823, end: 20090923
  7. FILGRASTIM [Concomitant]
     Dosage: 150 MG, UNKNOWN/D
     Route: 042
     Dates: start: 20090823, end: 20091003

REACTIONS (1)
  - LEUKOENCEPHALOPATHY [None]
